FAERS Safety Report 7218157-6 (Version None)
Quarter: 2011Q1

REPORT INFORMATION
  Report Type: 
  Country: None (occurrence: None)
  Receive Date: 20110110
  Receipt Date: 20101025
  Transmission Date: 20110831
  Serious: No
  Sender: FDA-Public Use
  Company Number: US-BAYER-201022508BCC

PATIENT
  Sex: Female
  Weight: 77 kg

DRUGS (6)
  1. ALEVE [Suspect]
     Indication: POST-TRAUMATIC PAIN
     Dosage: AS USED DOSE: 440/220 MG
     Route: 048
     Dates: start: 20100801
  2. ASPIRIN [Suspect]
  3. ALEVE [Suspect]
     Indication: ARTHRITIS
  4. QUINAPRIL [Concomitant]
  5. METFORMIN [Concomitant]
  6. SYNTHROID [Concomitant]

REACTIONS (9)
  - HYPERSENSITIVITY [None]
  - CHEST PAIN [None]
  - SLUGGISHNESS [None]
  - CARDIAC DISCOMFORT [None]
  - FATIGUE [None]
  - NAUSEA [None]
  - ARTHRALGIA [None]
  - PALPITATIONS [None]
  - BACK PAIN [None]
